FAERS Safety Report 20859928 (Version 2)
Quarter: 2022Q2

REPORT INFORMATION
  Report Type: Spontaneous
  Country: PA (occurrence: PA)
  Receive Date: 20220523
  Receipt Date: 20220608
  Transmission Date: 20220721
  Serious: Yes (Other)
  Sender: FDA-Public Use
  Company Number: PA-ASTELLAS-2022US017828

PATIENT
  Age: 96 Year
  Sex: Male

DRUGS (4)
  1. XTANDI [Suspect]
     Active Substance: ENZALUTAMIDE
     Indication: Prostate cancer
     Route: 048
  2. XTANDI [Suspect]
     Active Substance: ENZALUTAMIDE
     Dosage: 120 MG, ONCE DAILY (THREE 40 MG CAPSULES PER DAY)
     Route: 048
     Dates: start: 20220427, end: 202205
  3. DIOVAN [Concomitant]
     Active Substance: VALSARTAN
     Indication: Product used for unknown indication
     Dosage: HALF TAB EVERY MORNING (ONCE DAILY)
     Route: 065
  4. LASIX [Concomitant]
     Active Substance: FUROSEMIDE
     Indication: Inflammation
     Dosage: HALF TABLET ONCE DAILY
     Route: 065

REACTIONS (7)
  - Head injury [Unknown]
  - Fall [Unknown]
  - Hernia [Not Recovered/Not Resolved]
  - Peripheral swelling [Recovering/Resolving]
  - Drug intolerance [Unknown]
  - Asthenia [Not Recovered/Not Resolved]
  - Dizziness [Not Recovered/Not Resolved]

NARRATIVE: CASE EVENT DATE: 20220301
